FAERS Safety Report 4880118-X (Version None)
Quarter: 2005Q4

REPORT INFORMATION
  Report Type: 
  Country: None (occurrence: None)
  Receive Date: 20051223
  Receipt Date: 20051027
  Transmission Date: 20060501
  Serious: No
  Sender: FDA-Public Use
  Company Number: 05P-163-0313778-00

PATIENT
  Age: 78 Year
  Sex: Female
  Weight: 104.5 kg

DRUGS (13)
  1. HUMIRA [Suspect]
     Indication: RHEUMATOID ARTHRITIS
     Dosage: 40 MG, 1 IN 2 WK, SUBCUTANEOUS
     Route: 058
     Dates: start: 20050915, end: 20051001
  2. PREDNISONE [Concomitant]
  3. SERTRALINE HYDROCHLORIDE [Concomitant]
  4. PROPACET 100 [Concomitant]
  5. BUMETANIDE [Concomitant]
  6. LISINOPRIL [Concomitant]
  7. CETIRIZINE HYDROCHLORIDE [Concomitant]
  8. CHLORAFED [Concomitant]
  9. CLOPIDOGREL BISULFATE [Concomitant]
  10. POTASSIUM [Concomitant]
  11. FOLIC ACID [Concomitant]
  12. OXYBUTYNIN HYDROCHLORIDE [Concomitant]
  13. ASPIRIN [Concomitant]

REACTIONS (8)
  - BLOOD PRESSURE INCREASED [None]
  - DIARRHOEA [None]
  - DRUG INEFFECTIVE [None]
  - INJECTION SITE BRUISING [None]
  - INJECTION SITE IRRITATION [None]
  - INSOMNIA [None]
  - PAIN [None]
  - RED BLOOD CELL SEDIMENTATION RATE INCREASED [None]
